FAERS Safety Report 8012858-8 (Version None)
Quarter: 2011Q4

REPORT INFORMATION
  Report Type: 
  Country: None (occurrence: None)
  Receive Date: 20111229
  Receipt Date: 20111221
  Transmission Date: 20120403
  Serious: Yes (Life-Threatening, Hospitalization)
  Sender: FDA-Public Use
  Company Number: US-CELGENEUS-163-C5013-10071690

PATIENT
  Sex: Male
  Weight: 113.05 kg

DRUGS (59)
  1. DEMADEX [Concomitant]
     Indication: HYPERTENSION
     Dosage: 20 MILLIGRAM
     Route: 065
     Dates: start: 19900101
  2. VANCOMYCIN HYCHLORIDE [Concomitant]
     Indication: PROTEUS INFECTION
  3. CIPROFLOXACIN [Concomitant]
     Indication: PSEUDOMONAS INFECTION
     Route: 065
     Dates: start: 20100101
  4. PRIMAXIN [Concomitant]
     Indication: PSEUDOMONAS INFECTION
     Route: 065
     Dates: start: 20100101
  5. PRIMAXIN [Concomitant]
     Indication: PROTEUS INFECTION
  6. GASTROGRAFIN [Concomitant]
     Indication: SCAN WITH CONTRAST
     Dosage: 5 MILLILITER
     Route: 048
     Dates: start: 20100722, end: 20100722
  7. POTASSIUM CHLORIDE [Concomitant]
     Dosage: 10 MILLIEQUIVALENTS
     Route: 048
     Dates: start: 20100718, end: 20100724
  8. IMIPENEM AND CILASTATIN SODIUM [Concomitant]
     Dosage: 500 MILLIGRAM
     Route: 041
     Dates: start: 20100714, end: 20100719
  9. ADULT TPN [Concomitant]
     Dosage: 50ML/HR
     Route: 041
     Dates: start: 20100714, end: 20100715
  10. LANTUS [Concomitant]
     Dosage: 30 UNITS
     Route: 058
     Dates: start: 20100714, end: 20100714
  11. DOCETAXEL [Suspect]
     Indication: PROSTATE CANCER
     Dosage: 160 MILLIGRAM
     Route: 065
     Dates: start: 20100518
  12. VANCOMYCIN HYCHLORIDE [Concomitant]
     Indication: FEBRILE NEUTROPENIA
  13. PRAVASTATIN [Concomitant]
     Dosage: 80 MILLIGRAM
     Route: 048
     Dates: start: 20100716, end: 20100723
  14. SODIUM CHLORIDE [Concomitant]
     Dosage: 125 MILLILITER
     Route: 041
     Dates: start: 20100714, end: 20100715
  15. HYDROCODONE [Concomitant]
     Indication: PAIN
     Dosage: 7.5/500MG
     Route: 048
     Dates: start: 20100717, end: 20100724
  16. LENALIDOMIDE [Suspect]
     Indication: PROSTATE CANCER
     Dosage: 25 MILLIGRAM
     Route: 048
     Dates: start: 20100518
  17. DEMADEX [Concomitant]
  18. HUMALOG [Concomitant]
     Dosage: SLIDING SCALE
     Route: 058
     Dates: start: 20080801
  19. IMDUR [Concomitant]
     Indication: HYPERTENSION
     Dosage: 30 MILLIGRAM
     Route: 048
     Dates: start: 19900101
  20. IMDUR [Concomitant]
     Dosage: 20 MILLIGRAM
     Route: 048
  21. LUPRON [Concomitant]
     Indication: HORMONE SUPPRESSION THERAPY
     Route: 030
     Dates: start: 20090201
  22. MYCOSTATIN [Concomitant]
     Indication: RASH
     Route: 061
     Dates: start: 20100528
  23. LORTAB [Concomitant]
     Dosage: 5/500
     Route: 065
  24. ARANESP [Concomitant]
     Dosage: 200 MICROGRAM
     Route: 058
     Dates: start: 20100720, end: 20100720
  25. SODIUM CHLORIDE [Concomitant]
     Dosage: 75ML/HR
     Route: 041
     Dates: start: 20100717, end: 20100724
  26. LANTUS [Concomitant]
     Dosage: 50 IU (INTERNATIONAL UNIT)
     Route: 058
     Dates: start: 20080801
  27. DOCETAXEL [Suspect]
     Dosage: 160 MILLIGRAM
     Route: 065
     Dates: start: 20100707, end: 20100713
  28. ATENOLOL [Concomitant]
     Indication: HYPERTENSION
     Dosage: 50 MILLIGRAM
     Route: 048
     Dates: start: 19900101
  29. VANCOMYCIN HYCHLORIDE [Concomitant]
  30. POTASSIUM CHLORIDE [Concomitant]
     Dosage: 20 MILLIEQUIVALENTS
     Route: 041
     Dates: start: 20100718, end: 20100718
  31. ACETAMINOPHEN [Concomitant]
     Indication: PYREXIA
     Dosage: 650 MILLIGRAM
     Route: 048
     Dates: start: 20100714, end: 20100715
  32. PIPERACILLIN AND TAZOBACTAM [Concomitant]
     Dosage: 3.375 GRAM
     Route: 041
     Dates: start: 20100719, end: 20100720
  33. PIPERACILLIN AND TAZOBACTAM [Concomitant]
     Indication: FEBRILE NEUTROPENIA
  34. CIPROFLOXACIN [Concomitant]
     Indication: PROTEUS INFECTION
  35. SODIUM CHLORIDE [Concomitant]
     Dosage: 10 MILLILITER
     Route: 041
     Dates: start: 20100714, end: 20100718
  36. ISOSORBIDE MONONITRATE [Concomitant]
     Indication: CHEST PAIN
     Dosage: 120 MILLIGRAM
     Route: 048
     Dates: start: 20100714, end: 20100714
  37. FUROSEMIDE [Concomitant]
     Dosage: 40 MILLIGRAM
     Route: 041
     Dates: start: 20100715, end: 20100715
  38. LENALIDOMIDE [Suspect]
     Dosage: 25 MILLIGRAM
     Route: 048
     Dates: start: 20100707, end: 20100713
  39. DIFLUCAN [Concomitant]
     Indication: RASH
     Dosage: 100 MILLIGRAM
     Route: 048
     Dates: start: 20100528
  40. AMLODIPINE [Concomitant]
     Indication: HYPERTENSION
     Dosage: 2.5 MILLIGRAM
     Route: 048
     Dates: start: 19900101
  41. MEPHYTON [Concomitant]
     Indication: THROMBOCYTOPENIA
     Dosage: 25 MILLIGRAM
     Route: 048
     Dates: start: 20100728, end: 20100728
  42. DOCUSATE SODIUM [Concomitant]
     Indication: CONSTIPATION
     Dosage: 100 MILLIGRAM
     Route: 048
     Dates: start: 20100716, end: 20100724
  43. FAMOTIDINE [Concomitant]
     Dosage: 20 MILLIGRAM
     Route: 041
     Dates: start: 20100715, end: 20100724
  44. LOTRIMIN [Concomitant]
     Indication: RASH
     Route: 061
     Dates: start: 20100526, end: 20100528
  45. ASPIRIN [Concomitant]
     Indication: THROMBOSIS PROPHYLAXIS
     Dosage: 81 MILLIGRAM
     Route: 048
     Dates: start: 19900101
  46. WARFARIN SODIUM [Concomitant]
     Indication: THROMBOSIS PROPHYLAXIS
     Dosage: 7.5 MILLIGRAM
     Route: 048
     Dates: start: 20061001
  47. ENOXAPARIN [Concomitant]
     Dosage: 40 MICROGRAM
     Route: 058
     Dates: start: 20100717, end: 20100719
  48. IMIPENEM AND CILASTATIN SODIUM [Concomitant]
     Indication: FEBRILE NEUTROPENIA
  49. KETOROLAC TROMETHAMINE [Concomitant]
     Indication: PAIN
     Dosage: 15 MILLIGRAM
     Route: 041
     Dates: start: 20100715, end: 20100716
  50. HYDROMORPHONE HCL [Concomitant]
     Indication: PAIN
     Dosage: .5 MILLIGRAM
     Route: 048
     Dates: start: 20100714, end: 20100714
  51. HYDROMORPHONE HCL [Concomitant]
     Dosage: 1 MILLIGRAM
     Route: 048
     Dates: start: 20100714, end: 20100724
  52. PREDNISONE TAB [Suspect]
     Indication: PROSTATE CANCER
     Dosage: 5 MILLIGRAM
     Route: 065
     Dates: start: 20100518
  53. PREDNISONE TAB [Suspect]
     Dosage: 5 MILLIGRAM
     Route: 065
     Dates: start: 20100707, end: 20100713
  54. FLOMAX [Concomitant]
     Dosage: .4 MILLIGRAM
     Route: 048
     Dates: start: 20020201
  55. WARFARIN SODIUM [Concomitant]
     Dosage: 2.5 MILLIGRAM
     Route: 065
  56. VANCOMYCIN HYCHLORIDE [Concomitant]
     Indication: PSEUDOMONAS INFECTION
     Dosage: 1500 MILLIGRAM
     Route: 041
     Dates: start: 20100714, end: 20100714
  57. NEULASTA [Concomitant]
     Route: 065
  58. FAT EMULSION [Concomitant]
     Dosage: 250 MILLILITER
     Route: 041
     Dates: start: 20100715, end: 20100716
  59. LANTUS [Concomitant]
     Indication: FEBRILE NEUTROPENIA
     Dosage: 30 UNITS
     Route: 058
     Dates: start: 20100716, end: 20100724

REACTIONS (2)
  - INFECTIOUS PERITONITIS [None]
  - GASTROINTESTINAL PERFORATION [None]
